FAERS Safety Report 21939406 (Version 1)
Quarter: 2023Q1

REPORT INFORMATION
  Report Type: Report from Study
  Country: US (occurrence: US)
  Receive Date: 20230201
  Receipt Date: 20230201
  Transmission Date: 20230417
  Serious: No
  Sender: FDA-Public Use
  Company Number: US-EXELIXIS-CABO-21047390

PATIENT
  Sex: Male

DRUGS (3)
  1. CABOMETYX [Suspect]
     Active Substance: CABOZANTINIB S-MALATE
     Indication: Renal cancer
     Dosage: 60 MG, QD (20 MG X3 TABLETS)
     Route: 048
     Dates: start: 20211103, end: 20211129
  2. CABOMETYX [Suspect]
     Active Substance: CABOZANTINIB S-MALATE
     Dosage: 40 MG, QD
     Route: 048
     Dates: start: 20211225
  3. BD PEN MINI MIS [Concomitant]
     Dosage: UNK

REACTIONS (5)
  - Thermal burn [Unknown]
  - Mental status changes [Unknown]
  - General physical condition abnormal [Unknown]
  - Oropharyngeal pain [Unknown]
  - Palmar-plantar erythrodysaesthesia syndrome [Unknown]
